FAERS Safety Report 10311958 (Version 1)
Quarter: 2014Q3

REPORT INFORMATION
  Report Type: Spontaneous
  Country: US (occurrence: US)
  Receive Date: 20140717
  Receipt Date: 20140717
  Transmission Date: 20150326
  Serious: No
  Sender: FDA-Public Use
  Company Number: US-009507513-1407USA006697

PATIENT
  Age: 52 Year
  Sex: Female
  Weight: 69.7 kg

DRUGS (3)
  1. PEGINTRON [Suspect]
     Active Substance: PEGINTERFERON ALFA-2B
     Indication: HEPATITIS C
     Dosage: INJECT  180 MCG/0.5 ML UNDER THE SKIN EVERY WEEK
     Route: 065
     Dates: start: 20120726
  2. VICTRELIS [Suspect]
     Active Substance: BOCEPREVIR
     Indication: HEPATITIS C
     Dosage: FOUR CAPSULES BY MOUTH EVERY 9 HOURS
     Route: 048
     Dates: start: 20120823
  3. REBETOL [Suspect]
     Active Substance: RIBAVIRIN
     Route: 065

REACTIONS (2)
  - Nausea [Unknown]
  - Vomiting [Unknown]

NARRATIVE: CASE EVENT DATE: 20121130
